FAERS Safety Report 18162065 (Version 1)
Quarter: 2020Q3

REPORT INFORMATION
  Report Type: Spontaneous
  Country: US (occurrence: US)
  Receive Date: 20200818
  Receipt Date: 20200818
  Transmission Date: 20201103
  Serious: Yes (Life-Threatening, Hospitalization)
  Sender: FDA-Public Use
  Company Number: None

PATIENT
  Age: 69 Year
  Sex: Female
  Weight: 54.9 kg

DRUGS (7)
  1. VITAMIN D [Concomitant]
     Active Substance: VITAMIN D NOS
  2. LOSARTAN. [Concomitant]
     Active Substance: LOSARTAN
  3. CHOLESTOFF [Concomitant]
  4. DOXYCYCLINE100 MG CAPSULES [Suspect]
     Active Substance: DOXYCYCLINE HYCLATE
     Indication: SINUSITIS
     Dosage: ?
     Route: 048
     Dates: start: 20200731, end: 20200803
  5. FLONASE [Concomitant]
     Active Substance: FLUTICASONE PROPIONATE
  6. DOXYCYCLINE100 MG CAPSULES [Suspect]
     Active Substance: DOXYCYCLINE HYCLATE
     Indication: BACTERIAL INFECTION
     Dosage: ?
     Route: 048
     Dates: start: 20200731, end: 20200803
  7. HAR SKIN NAILS DAILY VITAMIN [Concomitant]

REACTIONS (16)
  - Decreased appetite [None]
  - Micturition urgency [None]
  - Sleep disorder [None]
  - Nausea [None]
  - Tremor [None]
  - Hypoaesthesia [None]
  - Munchausen^s syndrome [None]
  - Infrequent bowel movements [None]
  - Fatigue [None]
  - Muscular weakness [None]
  - Chills [None]
  - Weight decreased [None]
  - Dehydration [None]
  - Feeling abnormal [None]
  - Vital functions abnormal [None]
  - Anxiety [None]

NARRATIVE: CASE EVENT DATE: 20200801
